FAERS Safety Report 5734051-1 (Version None)
Quarter: 2008Q2

REPORT INFORMATION
  Report Type: 
  Country: None (occurrence: None)
  Receive Date: 20080509
  Receipt Date: 20080430
  Transmission Date: 20081010
  Serious: Yes (Death, Hospitalization, Other)
  Sender: FDA-Public Use
  Company Number: US-ABBOTT-08P-163-0443899-00

PATIENT
  Age: 78 Year
  Sex: Male
  Weight: 89 kg

DRUGS (11)
  1. DEPAKOTE [Suspect]
     Indication: DRUG USE FOR UNKNOWN INDICATION
  2. DEPAKOTE [Suspect]
  3. IRINOTECAN HCL [Suspect]
     Indication: GLIOBLASTOMA MULTIFORME
     Dosage: 125MG/M2, 90 MIN ON DAYS 1 AND 15
     Route: 042
     Dates: start: 20071030, end: 20080205
  4. IRINOTECAN HCL [Suspect]
  5. BEVACIZUMAB [Suspect]
     Indication: GLIOBLASTOMA MULTIFORME
     Dosage: 10MG/M2, 90-30 MIN ON DAYS 1 AND 15
     Route: 042
     Dates: start: 20071030, end: 20080205
  6. BEVACIZUMAB [Suspect]
  7. BEVACIZUMAB [Suspect]
  8. ACETYLSALICYLIC ACID SRT [Suspect]
     Indication: DRUG USE FOR UNKNOWN INDICATION
  9. LORAZEPAM [Suspect]
     Indication: DRUG USE FOR UNKNOWN INDICATION
  10. LORAZEPAM [Suspect]
  11. LORAZEPAM [Concomitant]

REACTIONS (18)
  - AMMONIA INCREASED [None]
  - ASPIRATION [None]
  - CONVULSION [None]
  - DEPRESSED LEVEL OF CONSCIOUSNESS [None]
  - DIARRHOEA [None]
  - DYSPNOEA [None]
  - GASTROINTESTINAL HAEMORRHAGE [None]
  - GLIOBLASTOMA MULTIFORME [None]
  - HYPOMAGNESAEMIA [None]
  - INFECTION [None]
  - MENTAL DISORDER [None]
  - MYOCLONUS [None]
  - PNEUMONIA ASPIRATION [None]
  - RESPIRATORY FAILURE [None]
  - SEDATION [None]
  - SOMNOLENCE [None]
  - URINARY TRACT INFECTION [None]
  - WHITE BLOOD CELL COUNT INCREASED [None]
